FAERS Safety Report 6277449-8 (Version None)
Quarter: 2009Q3

REPORT INFORMATION
  Report Type: 
  Country: None (occurrence: None)
  Receive Date: 20090722
  Receipt Date: 20090710
  Transmission Date: 20100115
  Serious: Yes (Life-Threatening, Hospitalization, Disabling)
  Sender: FDA-Public Use
  Company Number: IT-PFIZER INC-2009238663

PATIENT
  Age: 75 Year

DRUGS (6)
  1. PEGVISOMANT [Suspect]
     Indication: ACROMEGALY
     Dosage: 10 MG, 1X/DAY
     Route: 058
     Dates: start: 20090501
  2. ACETYLSALICYLIC ACID [Concomitant]
  3. PERINDOPRIL [Concomitant]
  4. ENALAPRIL [Concomitant]
  5. HYDROCHLOROTHIAZIDE [Concomitant]
  6. NEBIVOLOL [Concomitant]

REACTIONS (1)
  - OESOPHAGEAL CARCINOMA [None]
